FAERS Safety Report 8941022 (Version 4)
Quarter: 2013Q1

REPORT INFORMATION
  Report Type: Spontaneous
  Country: JP (occurrence: JP)
  Receive Date: 20121203
  Receipt Date: 20130123
  Transmission Date: 20140127
  Serious: Yes (Hospitalization)
  Sender: FDA-Public Use
  Company Number: JP-BAYER-2012-122686

PATIENT
  Age: 74 Year
  Sex: Female
  Weight: 45.35 kg

DRUGS (18)
  1. AVELOX [Suspect]
     Indication: PROPHYLAXIS
     Dosage: 400 MG, QD
     Route: 048
     Dates: start: 20120303
  2. AVELOX [Suspect]
     Indication: PROPHYLAXIS
     Dosage: 400 MG, QD
     Route: 048
     Dates: start: 20120425, end: 20120523
  3. CORTICOSTEROIDS [Concomitant]
  4. PREDNISOLONE [Concomitant]
     Indication: GLOMERULONEPHRITIS RAPIDLY PROGRESSIVE
     Dosage: 20 MG, QD
     Route: 048
     Dates: start: 20120221
  5. PREDNISOLONE [Concomitant]
     Indication: GLOMERULONEPHRITIS RAPIDLY PROGRESSIVE
     Dosage: 45 MG, QD
     Dates: start: 20120608
  6. PREDNISOLONE [Concomitant]
     Indication: GLOMERULONEPHRITIS RAPIDLY PROGRESSIVE
     Dosage: 30 MG, QD
     Dates: start: 20120614
  7. PREDNISOLONE [Concomitant]
     Indication: GLOMERULONEPHRITIS RAPIDLY PROGRESSIVE
     Dosage: 25 MG, QD
     Dates: start: 20120712
  8. KLARICID [Suspect]
     Dosage: 200 MG, QD
     Route: 048
     Dates: start: 20120202
  9. KLARICID [Suspect]
     Dosage: UNK
  10. PARIET [Concomitant]
     Dosage: 10 MG, QD
     Route: 048
     Dates: start: 20120221
  11. ZETIA [Concomitant]
     Dosage: 100 MG, QD
     Route: 048
  12. GASMOTIN [Concomitant]
     Dosage: 5 MG, TID
     Route: 048
     Dates: start: 20120222
  13. MAGMITT [Concomitant]
     Dosage: UNK
     Route: 048
  14. BONALON [Concomitant]
     Dosage: 35 MG, QD
     Route: 048
     Dates: start: 20120221
  15. MYSLEE [Concomitant]
     Route: 048
  16. CILASTATIN W/IMIPENEM [Concomitant]
     Dosage: 0.125 G, BID
     Dates: start: 20120202
  17. TAKEPRON [Concomitant]
     Dosage: 15 MG, QD
     Route: 048
     Dates: start: 20120217
  18. PICIBANIL [Concomitant]
     Dosage: UNK
     Dates: start: 20120322

REACTIONS (7)
  - Pneumonia [Recovering/Resolving]
  - Interstitial lung disease [Recovering/Resolving]
  - Pneumomediastinum [Recovering/Resolving]
  - Subcutaneous emphysema [Recovering/Resolving]
  - Swollen tongue [None]
  - Feeling abnormal [None]
  - Dyspnoea [Recovering/Resolving]
